FAERS Safety Report 18241862 (Version 1)
Quarter: 2020Q3

REPORT INFORMATION
  Report Type: Spontaneous
  Country: US (occurrence: US)
  Receive Date: 20200908
  Receipt Date: 20200908
  Transmission Date: 20201103
  Serious: Yes (Hospitalization)
  Sender: FDA-Public Use
  Company Number: None

PATIENT
  Age: 55 Year
  Sex: Male
  Weight: 110.8 kg

DRUGS (19)
  1. PENTAMIDINE 300 MG [Concomitant]
  2. ASPIRIN 81 MG [Concomitant]
     Active Substance: ASPIRIN
  3. POSACONAZOLE 300 MG [Concomitant]
  4. TACROLIMUS 0.5 MG [Concomitant]
     Active Substance: TACROLIMUS
  5. INSULIN DEGLUDEC 50 UNITS [Concomitant]
  6. TACROLIMUS 1 MG [Concomitant]
     Active Substance: TACROLIMUS
  7. RUXOLITINIB [Suspect]
     Active Substance: RUXOLITINIB
     Indication: GRAFT VERSUS HOST DISEASE
     Route: 048
     Dates: start: 20200421, end: 20200820
  8. SPIRONOLACTONE 25 MG [Concomitant]
     Active Substance: SPIRONOLACTONE
  9. IVIG 35 G [Concomitant]
  10. METOPROLOL SUCCINATE 50 MG [Concomitant]
     Active Substance: METOPROLOL SUCCINATE
  11. ROSUVASTATIN 20 MG [Concomitant]
     Active Substance: ROSUVASTATIN
  12. TAMSULOSIN 0.4 MG [Concomitant]
     Active Substance: TAMSULOSIN
  13. OMEPRAZOLE 20 MG [Concomitant]
     Active Substance: OMEPRAZOLE
  14. DULAGLUTIDE 1.5 MG [Concomitant]
  15. ACYCLOVIR 400 MG [Concomitant]
     Active Substance: ACYCLOVIR
  16. AZITHROMYCIN 250 MG [Concomitant]
     Active Substance: AZITHROMYCIN ANHYDROUS
  17. INSULIN LISPRO 35 UNITS [Concomitant]
  18. LOSARTAN 50 MG [Concomitant]
     Active Substance: LOSARTAN
  19. PREDNISONE 60 MG [Concomitant]
     Active Substance: PREDNISONE

REACTIONS (3)
  - Tachycardia [None]
  - Pulmonary embolism [None]
  - Hypoxia [None]

NARRATIVE: CASE EVENT DATE: 20200820
